FAERS Safety Report 5597093-5 (Version None)
Quarter: 2008Q1

REPORT INFORMATION
  Report Type: 
  Country: None (occurrence: None)
  Receive Date: 20080121
  Receipt Date: 20080115
  Transmission Date: 20080703
  Serious: Yes (Death, Life-Threatening, Hospitalization)
  Sender: FDA-Public Use
  Company Number: PHBS2008GB01013

PATIENT
  Age: 42 Year
  Sex: Male
  Weight: 45 kg

DRUGS (2)
  1. ACETAMINOPHEN [Suspect]
     Dosage: 1 G, QID
  2. CARBAMAZEPINE [Suspect]

REACTIONS (11)
  - ACUTE HEPATIC FAILURE [None]
  - ALANINE AMINOTRANSFERASE INCREASED [None]
  - AMMONIA INCREASED [None]
  - BLOOD BILIRUBIN INCREASED [None]
  - ENCEPHALOPATHY [None]
  - GASTRIC PERFORATION [None]
  - INTERNATIONAL NORMALISED RATIO INCREASED [None]
  - LOWER RESPIRATORY TRACT INFECTION [None]
  - MULTI-ORGAN FAILURE [None]
  - OVERDOSE [None]
  - RESPIRATORY FAILURE [None]
